FAERS Safety Report 9968183 (Version 1)
Quarter: 2014Q1

REPORT INFORMATION
  Report Type: Report from Study
  Country: US (occurrence: US)
  Receive Date: 20140306
  Receipt Date: 20140306
  Transmission Date: 20141002
  Serious: No
  Sender: FDA-Public Use
  Company Number: US-ABBVIE-13P-163-1144544-00

PATIENT
  Age: 60 Year
  Sex: Male

DRUGS (4)
  1. HUMIRA [Suspect]
     Indication: CROHN^S DISEASE
     Dates: start: 201307
  2. ENTOCORT [Concomitant]
     Indication: PRODUCT USED FOR UNKNOWN INDICATION
     Dates: start: 201307, end: 201307
  3. ENTOCORT [Concomitant]
  4. ENTOCORT [Concomitant]

REACTIONS (1)
  - Nasopharyngitis [Recovering/Resolving]
